FAERS Safety Report 23763383 (Version 2)
Quarter: 2025Q1

REPORT INFORMATION
  Report Type: Spontaneous
  Country: US (occurrence: US)
  Receive Date: 20240419
  Receipt Date: 20250129
  Transmission Date: 20250409
  Serious: Yes (Other)
  Sender: SANOFI AVENTIS
  Company Number: US-SA-SAC20240418000534

PATIENT
  Age: 67 Year
  Sex: Female

DRUGS (2)
  1. DUPIXENT [Suspect]
     Active Substance: DUPILUMAB
     Indication: Dermatitis allergic
     Dosage: 300 MG, QOW
     Route: 058
     Dates: end: 2024
  2. GABAPENTIN [Concomitant]
     Active Substance: GABAPENTIN
     Dosage: 300 MG, BID

REACTIONS (1)
  - Knee arthroplasty [Unknown]

NARRATIVE: CASE EVENT DATE: 20240313
